FAERS Safety Report 25002636 (Version 1)
Quarter: 2025Q1

REPORT INFORMATION
  Report Type: Spontaneous
  Country: CN (occurrence: CN)
  Receive Date: 20250224
  Receipt Date: 20250224
  Transmission Date: 20250409
  Serious: Yes (Life-Threatening, Hospitalization, Other)
  Sender: DR REDDYS
  Company Number: None

PATIENT
  Age: 83 Year
  Sex: Male
  Weight: 60 kg

DRUGS (2)
  1. CLOPIDOGREL BISULFATE [Suspect]
     Active Substance: CLOPIDOGREL BISULFATE
     Indication: Cerebral infarction
     Dosage: CLOPIDOGREL BISULFATE TABLETS 75MG,QD
     Route: 048
     Dates: start: 20240105, end: 20250125
  2. ASPIRIN [Suspect]
     Active Substance: ASPIRIN
     Indication: Cerebral infarction
     Dosage: ASPIRIN ENTERIC-COATED TABLETS?100MG,QD
     Route: 048
     Dates: start: 20240105, end: 20250125

REACTIONS (1)
  - Upper gastrointestinal haemorrhage [Recovering/Resolving]

NARRATIVE: CASE EVENT DATE: 20250125
